FAERS Safety Report 11451618 (Version 1)
Quarter: 2015Q3

REPORT INFORMATION
  Report Type: Spontaneous
  Country: CA (occurrence: CA)
  Receive Date: 20150903
  Receipt Date: 20150903
  Transmission Date: 20151125
  Serious: Yes (Other)
  Sender: FDA-Public Use
  Company Number: CA-JNJFOC-20150818683

PATIENT

DRUGS (1)
  1. INFLIXIMAB, RECOMBINANT [Suspect]
     Active Substance: INFLIXIMAB
     Indication: COLITIS ULCERATIVE
     Dosage: 6 TO 8 WEEK INTERVAL
     Route: 042

REACTIONS (6)
  - Infusion related reaction [Unknown]
  - Colectomy [Unknown]
  - Demyelination [Unknown]
  - Adverse event [Unknown]
  - Drug ineffective [Unknown]
  - Colitis ulcerative [Unknown]
